FAERS Safety Report 6890604-9 (Version None)
Quarter: 2010Q3

REPORT INFORMATION
  Report Type: 
  Country: None (occurrence: None)
  Receive Date: 20100731
  Receipt Date: 20081222
  Transmission Date: 20110219
  Serious: No
  Sender: FDA-Public Use
  Company Number: US-PFIZER INC-2008099459

PATIENT
  Sex: Male
  Weight: 67.574 kg

DRUGS (3)
  1. LIPITOR [Suspect]
     Indication: CORONARY ARTERY DISEASE
     Dosage: 80 MG, 1X/DAY
     Dates: start: 20080901
  2. PLAVIX [Suspect]
     Indication: CORONARY ARTERY DISEASE
     Dosage: 75 MG, 1X/DAY
     Route: 048
     Dates: start: 20080901
  3. TAMSULOSIN [Concomitant]
     Dosage: UNK

REACTIONS (3)
  - CHANGE OF BOWEL HABIT [None]
  - DYSGEUSIA [None]
  - PAROSMIA [None]
